FAERS Safety Report 13695575 (Version 4)
Quarter: 2017Q3

REPORT INFORMATION
  Report Type: Spontaneous
  Country: US (occurrence: US)
  Receive Date: 20170627
  Receipt Date: 20170816
  Transmission Date: 20171127
  Serious: Yes (Death, Hospitalization)
  Sender: FDA-Public Use
  Company Number: US-BAUSCH-BL-2017-019992

PATIENT
  Age: 83 Year
  Sex: Female

DRUGS (1)
  1. XIFAXAN [Suspect]
     Active Substance: RIFAXIMIN
     Indication: HEPATIC CIRRHOSIS
     Route: 048
     Dates: start: 201607, end: 201706

REACTIONS (3)
  - Condition aggravated [Not Recovered/Not Resolved]
  - Disease complication [Fatal]
  - Hepatic cirrhosis [Not Recovered/Not Resolved]

NARRATIVE: CASE EVENT DATE: 20170429
